FAERS Safety Report 16575032 (Version 4)
Quarter: 2020Q3

REPORT INFORMATION
  Report Type: Report from Study
  Country: HU (occurrence: HU)
  Receive Date: 20190715
  Receipt Date: 20200702
  Transmission Date: 20201102
  Serious: Yes (Life-Threatening, Hospitalization, Other)
  Sender: FDA-Public Use
  Company Number: PHHY2019HU163209

PATIENT
  Sex: Male

DRUGS (5)
  1. VENTOLIN [Concomitant]
     Active Substance: ALBUTEROL SULFATE
     Indication: ASTHMA
     Dosage: 4X2 PUFFS IN THE MORNING
     Route: 065
     Dates: start: 2011
  2. MOMETASONE SANDOZ [Suspect]
     Active Substance: MOMETASONE
     Indication: RHINITIS ALLERGIC
     Dosage: 2 DF, UNKNOWN
     Route: 065
     Dates: start: 2011
  3. CLARINEX [Concomitant]
     Active Substance: DESLORATADINE
     Indication: RHINITIS ALLERGIC
     Dosage: 1 DF, QHS
     Route: 065
     Dates: start: 2011
  4. AIRFLUSOL FORSPIRO [Suspect]
     Active Substance: FLUTICASONE PROPIONATE\SALMETEROL XINAFOATE
     Indication: ASTHMA
     Dosage: (50UG/250UG)50 UG, UNKNOWN
     Route: 065
  5. MONTELUKAST SODIUM. [Suspect]
     Active Substance: MONTELUKAST SODIUM
     Indication: ASTHMA
     Dosage: 1 DF, QHS
     Route: 065
     Dates: start: 2011

REACTIONS (6)
  - Malaise [Unknown]
  - Metastases to bone [Unknown]
  - Metastases to lung [Unknown]
  - Hypoacusis [Unknown]
  - Bladder cancer [Unknown]
  - Benign prostatic hyperplasia [Unknown]
